FAERS Safety Report 5018200-9 (Version None)
Quarter: 2006Q2

REPORT INFORMATION
  Report Type: 
  Country: None (occurrence: None)
  Receive Date: 20060530
  Receipt Date: 20060518
  Transmission Date: 20061013
  Serious: Yes (Life-Threatening)
  Sender: FDA-Public Use
  Company Number: 2006066129

PATIENT
  Age: 42 Year
  Sex: Male

DRUGS (5)
  1. FRAGMIN [Suspect]
     Indication: ILL-DEFINED DISORDER
     Dosage: (5000 I.U., EVERY DAY), SUBCUTANEOUS
     Route: 058
     Dates: start: 20060223
  2. XIGRIS [Suspect]
     Indication: ILL-DEFINED DISORDER
     Dosage: INTRAVENOUS
     Route: 042
     Dates: start: 20060223, end: 20060227
  3. NORADRENALINE (NOREPINEPHRINE) [Suspect]
     Indication: ILL-DEFINED DISORDER
     Dosage: INTRAVENOUS
     Route: 042
     Dates: start: 20060223, end: 20060227
  4. AUGMENTIN '125' [Concomitant]
  5. LEVOFLOXACIN [Concomitant]

REACTIONS (4)
  - ACUTE RESPIRATORY DISTRESS SYNDROME [None]
  - LUNG DISORDER [None]
  - PULMONARY EMBOLISM [None]
  - SEPTIC SHOCK [None]
